FAERS Safety Report 14973022 (Version 1)
Quarter: 2018Q2

REPORT INFORMATION
  Report Type: Spontaneous
  Country: FR (occurrence: FR)
  Receive Date: 20180605
  Receipt Date: 20180605
  Transmission Date: 20180711
  Serious: Yes (Hospitalization)
  Sender: FDA-Public Use
  Company Number: FR-TEVA-2018-FR-901427

PATIENT
  Age: 27 Year
  Sex: Female

DRUGS (5)
  1. TABAC (POUDRE DE) [Suspect]
     Active Substance: TOBACCO LEAF
     Dosage: 20 CIGARETTES PER DAY
     Route: 055
     Dates: start: 2004
  2. TRAMADOL (CHLORHYDRATE DE) [Suspect]
     Active Substance: TRAMADOL HYDROCHLORIDE
     Dosage: UNSPECIFIED
     Route: 048
     Dates: start: 201712
  3. COCAINE [Suspect]
     Active Substance: COCAINE
     Dosage: UNSPECIFIED
     Route: 065
     Dates: start: 2006, end: 2006
  4. SERESTA [Suspect]
     Active Substance: OXAZEPAM
     Dosage: 75 MILLIGRAM DAILY;
     Route: 048
     Dates: start: 2014
  5. CANNABIS ET RESINE [Suspect]
     Active Substance: CANNABIS SATIVA SUBSP. INDICA TOP
     Dosage: 7 TO 8 JOINTS A DAY
     Route: 055
     Dates: start: 2010

REACTIONS (7)
  - Drug dependence [Recovering/Resolving]
  - Disturbance in attention [Recovering/Resolving]
  - Memory impairment [Recovering/Resolving]
  - Drug abuse [Recovering/Resolving]
  - Intentional product misuse [Recovering/Resolving]
  - Drug dependence [Recovering/Resolving]
  - Drug abuse [Recovering/Resolving]

NARRATIVE: CASE EVENT DATE: 2006
